FAERS Safety Report 12762306 (Version 2)
Quarter: 2018Q1

REPORT INFORMATION
  Report Type: Report from Study
  Country: JP (occurrence: JP)
  Receive Date: 20160920
  Receipt Date: 20180227
  Transmission Date: 20180508
  Serious: Yes (Hospitalization)
  Sender: FDA-Public Use
  Company Number: JP-DSJP-DSJ-2016-119913

PATIENT

DRUGS (13)
  1. XARELTO [Suspect]
     Active Substance: RIVAROXABAN
     Dosage: 30MG/DAY
     Route: 048
     Dates: start: 20151121, end: 20151202
  2. URALYT                             /06402701/ [Concomitant]
     Active Substance: POTASSIUM CITRATE\TRISODIUM CITRATE DIHYDRATE
     Dosage: 3390MG/DAY
     Route: 048
     Dates: end: 20160107
  3. POSTERISAN FORTE                   /01567801/ [Concomitant]
     Dosage: UNK, 1-2 TIMES
     Route: 050
     Dates: end: 20160107
  4. LOXOPROFEN SODIUM [Concomitant]
     Active Substance: LOXOPROFEN SODIUM
     Dosage: 60MG/DAY
     Route: 048
     Dates: end: 20160107
  5. GRACEVIT [Concomitant]
     Active Substance: SITAFLOXACIN
     Dosage: 100MG/DAY
     Route: 048
     Dates: end: 20151113
  6. EDOXABAN [Suspect]
     Active Substance: EDOXABAN TOSYLATE
     Indication: DEEP VEIN THROMBOSIS
     Dosage: 60 MG, QD
     Route: 048
     Dates: start: 20151203, end: 20160107
  7. NEXIUM [Concomitant]
     Active Substance: ESOMEPRAZOLE MAGNESIUM
     Dosage: 20MG/DAY
     Route: 048
     Dates: end: 20151214
  8. MAGMITT [Concomitant]
     Active Substance: MAGNESIUM OXIDE
     Dosage: 1980MG/DAY
     Route: 048
     Dates: end: 20160107
  9. OTSUJITO [Concomitant]
     Active Substance: HERBS\ROOTS
     Dosage: 7.5G/DAY
     Route: 048
     Dates: start: 20151028, end: 20151223
  10. EDOXABAN [Suspect]
     Active Substance: EDOXABAN TOSYLATE
     Indication: PULMONARY EMBOLISM
     Dosage: 60 MG, QD
     Route: 048
     Dates: start: 20151111, end: 20151120
  11. NERIPROCT [Concomitant]
     Active Substance: DIFLUCORTOLONE VALERATE\LIDOCAINE
     Dosage: UNK, 2 TIMES
     Route: 050
     Dates: start: 20151028, end: 20160106
  12. CELECOX [Concomitant]
     Active Substance: CELECOXIB
     Dosage: 400MG/DAY
     Route: 048
     Dates: start: 20151030, end: 20160107
  13. DAIKENCHUTO [Concomitant]
     Active Substance: HERBALS
     Dosage: 7.5G/DAY
     Route: 048
     Dates: end: 20151217

REACTIONS (2)
  - Faeces discoloured [Recovering/Resolving]
  - Diarrhoea [Recovering/Resolving]

NARRATIVE: CASE EVENT DATE: 20151118
